FAERS Safety Report 9509040 (Version 1)
Quarter: 2013Q3

REPORT INFORMATION
  Report Type: Spontaneous
  Country: US (occurrence: US)
  Receive Date: 20130909
  Receipt Date: 20130909
  Transmission Date: 20140515
  Serious: No
  Sender: FDA-Public Use
  Company Number: US-PFIZER INC-2013257442

PATIENT
  Sex: Male

DRUGS (1)
  1. XELJANZ [Suspect]
     Dosage: UNK
     Dates: end: 20130903

REACTIONS (4)
  - Erythema [Recovering/Resolving]
  - Hot flush [Recovering/Resolving]
  - Paraesthesia [Recovering/Resolving]
  - Chills [Recovering/Resolving]
